FAERS Safety Report 8011717-4 (Version None)
Quarter: 2011Q4

REPORT INFORMATION
  Report Type: 
  Country: None (occurrence: None)
  Receive Date: 20111228
  Receipt Date: 20111222
  Transmission Date: 20120403
  Serious: No
  Sender: FDA-Public Use
  Company Number: US-BAYER-2011-123798

PATIENT
  Age: 79 Year
  Sex: Female
  Weight: 54 kg

DRUGS (5)
  1. ANTIHYPERTENSIVES [Concomitant]
  2. CELEBREX [Concomitant]
  3. ALEVE (CAPLET) [Suspect]
     Indication: BACK PAIN
     Route: 048
  4. MULTI-VITAMIN [Concomitant]
  5. FLAXSEED OIL [Concomitant]

REACTIONS (1)
  - NO ADVERSE EVENT [None]
